FAERS Safety Report 9643836 (Version 2)
Quarter: 2013Q4

REPORT INFORMATION
  Report Type: Spontaneous
  Country: CZ (occurrence: None)
  Receive Date: 20131023
  Receipt Date: 20131115
  Transmission Date: 20140711
  Serious: Yes (Hospitalization, Other)
  Sender: FDA-Public Use
  Company Number: SYM-2013-11453

PATIENT
  Age: 58 Year
  Sex: Female
  Weight: 92 kg

DRUGS (1)
  1. HYDROCORTISON [Suspect]
     Indication: DERMATITIS
     Route: 051
     Dates: start: 20130916, end: 20130916

REACTIONS (1)
  - Toxic skin eruption [None]
